FAERS Safety Report 8855378 (Version 1)
Quarter: 2012Q4

REPORT INFORMATION
  Report Type: 
  Country: US (occurrence: US)
  Receive Date: 20121023
  Receipt Date: 20121023
  Transmission Date: 20130627
  Serious: No
  Sender: FDA-Public Use
  Company Number: US-AMGEN-USASP2012059350

PATIENT
  Age: 38 Year
  Sex: Female
  Weight: 83.9 kg

DRUGS (6)
  1. ENBREL [Suspect]
     Indication: PSORIASIS
     Dosage: 50 mg, 2 times/wk
     Route: 058
     Dates: start: 20120827
  2. AMETHIA [Concomitant]
     Dosage: UNK
     Route: 048
  3. BUTALBITAL [Concomitant]
     Dosage: UNK
     Route: 048
  4. CRESTOR [Concomitant]
     Dosage: UNK
     Route: 048
  5. CYCLOBENZAPRINE [Concomitant]
     Dosage: UNK
     Route: 048
  6. VICODIN [Concomitant]
     Dosage: UNK
     Route: 048

REACTIONS (3)
  - Injection site bruising [Not Recovered/Not Resolved]
  - Injection site erythema [Recovered/Resolved]
  - Cellulitis [Unknown]
